FAERS Safety Report 20848263 (Version 1)
Quarter: 2022Q2

REPORT INFORMATION
  Report Type: Spontaneous
  Country: US (occurrence: None)
  Receive Date: 20220518
  Receipt Date: 20220518
  Transmission Date: 20220721
  Serious: No
  Sender: FDA-Public Use
  Company Number: None

PATIENT
  Age: 65 Year
  Sex: Female

DRUGS (1)
  1. EGRIFTA SV [Suspect]
     Active Substance: TESAMORELIN ACETATE
     Dosage: FREQUENCY : DAILY;?
     Route: 058
     Dates: start: 202201

REACTIONS (3)
  - Joint swelling [None]
  - Dry mouth [None]
  - Tongue disorder [None]

NARRATIVE: CASE EVENT DATE: 20220518
